FAERS Safety Report 9008797 (Version 1)
Quarter: 2013Q1

REPORT INFORMATION
  Report Type: Spontaneous
  Country: US (occurrence: US)
  Receive Date: 20130111
  Receipt Date: 20130111
  Transmission Date: 20140127
  Serious: Yes (Hospitalization)
  Sender: FDA-Public Use
  Company Number: US-009507513-1301USA002881

PATIENT
  Sex: Male

DRUGS (6)
  1. SINGULAIR [Suspect]
  2. SPIRIVA [Suspect]
     Route: 048
  3. PREVISCAN [Suspect]
  4. SERETIDE [Suspect]
  5. SOLUPRED [Suspect]
  6. DIGOXIN [Suspect]

REACTIONS (3)
  - Leukocytoclastic vasculitis [Unknown]
  - Dyspnoea [Unknown]
  - Cough [Unknown]
